FAERS Safety Report 13135231 (Version 3)
Quarter: 2017Q1

REPORT INFORMATION
  Report Type: Spontaneous
  Country: JP (occurrence: JP)
  Receive Date: 20170120
  Receipt Date: 20170216
  Transmission Date: 20170428
  Serious: Yes (Life-Threatening)
  Sender: FDA-Public Use
  Company Number: JP-AMGEN-JPNSP2017009446

PATIENT
  Age: 61 Year
  Sex: Male
  Weight: 65 kg

DRUGS (66)
  1. FEXOFENADINE HYDROCHLORIDE. [Concomitant]
     Active Substance: FEXOFENADINE HYDROCHLORIDE
     Indication: URTICARIA
     Dosage: 60 MG, BID
     Route: 048
     Dates: start: 20161024, end: 20161201
  2. FEXOFENADINE HYDROCHLORIDE. [Concomitant]
     Active Substance: FEXOFENADINE HYDROCHLORIDE
     Dosage: 60 MG, BID
     Route: 048
     Dates: start: 201612
  3. ONCOVIN [Concomitant]
     Active Substance: VINCRISTINE SULFATE
     Dosage: 2 MG, QD
     Route: 041
     Dates: start: 20161020, end: 20161020
  4. ENDOXAN [Concomitant]
     Active Substance: CYCLOPHOSPHAMIDE
     Dosage: 1254 MG, QD
     Route: 041
     Dates: start: 20161201, end: 20161201
  5. ENDOXAN [Concomitant]
     Active Substance: CYCLOPHOSPHAMIDE
     Dosage: 1254 MG, QD
     Route: 041
     Dates: start: 20161222, end: 20161222
  6. ZESULAN [Concomitant]
     Active Substance: MEQUITAZINE
     Dosage: 3 MG, BID
     Route: 048
     Dates: start: 20160728, end: 20160801
  7. FLAVERIC [Concomitant]
     Active Substance: BENPROPERINE PHOSPHATE
     Indication: LYMPHADENITIS
     Dosage: 20 MG, TID
     Route: 048
     Dates: start: 20160716, end: 20160726
  8. REBAMIPIDE [Concomitant]
     Active Substance: REBAMIPIDE
     Indication: GASTRIC ULCER
     Dosage: 100 MG, TID
     Route: 048
     Dates: start: 20160826, end: 20160901
  9. FEBURIC [Concomitant]
     Active Substance: FEBUXOSTAT
     Indication: HYPERURICAEMIA
     Dosage: 10 MG, QD
     Route: 048
     Dates: start: 20160916, end: 20160921
  10. EMEND [Concomitant]
     Active Substance: APREPITANT
     Dosage: 125 MG, QD
     Route: 048
     Dates: start: 20161020, end: 20161020
  11. EMEND [Concomitant]
     Active Substance: APREPITANT
     Dosage: 80 MG, QD
     Route: 048
     Dates: start: 20161021, end: 20161022
  12. MIYA-BM [Concomitant]
     Active Substance: CLOSTRIDIUM BUTYRICUM SPORES STRAIN M-55
     Indication: ENTEROCOLITIS
     Dosage: 1 DF, TID
     Route: 048
     Dates: start: 20161012, end: 20161017
  13. ALOXI [Concomitant]
     Active Substance: PALONOSETRON HYDROCHLORIDE
     Dosage: 0.75 MG, QD
     Route: 042
     Dates: start: 20161110, end: 20161110
  14. ALOXI [Concomitant]
     Active Substance: PALONOSETRON HYDROCHLORIDE
     Dosage: 0.75 MG, QD
     Route: 042
     Dates: start: 20161222, end: 20161222
  15. BAKTAR [Concomitant]
     Active Substance: SULFAMETHOXAZOLE\TRIMETHOPRIM
     Indication: PNEUMOCYSTIS JIROVECII PNEUMONIA
     Dosage: 1 DF, QD
     Route: 048
     Dates: start: 20160929
  16. G-LASTA [Suspect]
     Active Substance: PEGFILGRASTIM
     Dosage: 3.6 MG, QD
     Route: 058
     Dates: start: 20161112, end: 20161112
  17. ONCOVIN [Concomitant]
     Active Substance: VINCRISTINE SULFATE
     Dosage: 2 MG, QD
     Route: 041
     Dates: start: 20161222, end: 20161222
  18. PREDONINE [Concomitant]
     Active Substance: PREDNISOLONE
     Indication: ANGIOIMMUNOBLASTIC T-CELL LYMPHOMA
     Dosage: 100 MG, QD
     Route: 048
     Dates: start: 20160923, end: 20160927
  19. PREDONINE [Concomitant]
     Active Substance: PREDNISOLONE
     Dosage: 100 MG, QD
     Route: 048
     Dates: start: 20161222, end: 20161226
  20. EMEND [Concomitant]
     Active Substance: APREPITANT
     Dosage: 80 MG, QD
     Route: 048
     Dates: start: 20161202, end: 20161203
  21. ALOXI [Concomitant]
     Active Substance: PALONOSETRON HYDROCHLORIDE
     Dosage: 0.75 MG, QD
     Route: 042
     Dates: start: 20161201, end: 20161201
  22. DOXORUBICIN HYDROCHLORIDE. [Concomitant]
     Active Substance: DOXORUBICIN HYDROCHLORIDE
     Dosage: 83 MG, QD
     Route: 041
     Dates: start: 20161020, end: 20161020
  23. DOXORUBICIN HYDROCHLORIDE. [Concomitant]
     Active Substance: DOXORUBICIN HYDROCHLORIDE
     Dosage: 83 MG, QD
     Route: 041
     Dates: start: 20161110, end: 20161110
  24. PREDONINE [Concomitant]
     Active Substance: PREDNISOLONE
     Dosage: 100 MG, QD
     Route: 048
     Dates: start: 20161020, end: 20161024
  25. BLOPRESS [Concomitant]
     Active Substance: CANDESARTAN CILEXETIL
     Indication: HYPERTENSION
     Dosage: 8 MG, QD
     Route: 048
     Dates: start: 20080901, end: 20161222
  26. MIKELAN LA [Concomitant]
     Active Substance: CARTEOLOL HYDROCHLORIDE
     Indication: GLAUCOMA
     Dosage: UNK, QD
     Route: 047
     Dates: start: 2006
  27. PRORANON [Concomitant]
     Indication: GLAUCOMA
     Dosage: UNK, BID
     Route: 047
     Dates: start: 2006
  28. CIPROFLOXACIN. [Concomitant]
     Active Substance: CIPROFLOXACIN
     Indication: LYMPHADENITIS
     Dosage: 200 MG, TID
     Route: 048
     Dates: start: 20160722, end: 20160726
  29. CIPROFLOXACIN. [Concomitant]
     Active Substance: CIPROFLOXACIN
     Dosage: 200 MG, TID
     Route: 048
     Dates: start: 20160803, end: 20160807
  30. EMEND [Concomitant]
     Active Substance: APREPITANT
     Indication: VOMITING
     Dosage: 125 MG, QD
     Route: 048
     Dates: start: 20160923, end: 20160923
  31. G-LASTA [Suspect]
     Active Substance: PEGFILGRASTIM
     Dosage: 3.6 MG, QD
     Route: 058
     Dates: start: 20161203, end: 20161203
  32. DOXORUBICIN HYDROCHLORIDE. [Concomitant]
     Active Substance: DOXORUBICIN HYDROCHLORIDE
     Indication: ANGIOIMMUNOBLASTIC T-CELL LYMPHOMA
     Dosage: 85 MG, QD
     Route: 041
     Dates: start: 20160923, end: 20160923
  33. PREDONINE [Concomitant]
     Active Substance: PREDNISOLONE
     Dosage: 100 MG, QD
     Route: 048
     Dates: start: 20161110, end: 20161114
  34. CRESTOR [Concomitant]
     Active Substance: ROSUVASTATIN CALCIUM
     Indication: DYSLIPIDAEMIA
     Dosage: 2.5 MG, QD
     Route: 048
     Dates: start: 2014
  35. EMEND [Concomitant]
     Active Substance: APREPITANT
     Dosage: 80 MG, QD
     Route: 048
     Dates: start: 20160924, end: 20160925
  36. ALOXI [Concomitant]
     Active Substance: PALONOSETRON HYDROCHLORIDE
     Indication: VOMITING
     Dosage: 0.75 MG, QD
     Route: 042
     Dates: start: 20160923, end: 20160923
  37. ONCOVIN [Concomitant]
     Active Substance: VINCRISTINE SULFATE
     Indication: ANGIOIMMUNOBLASTIC T-CELL LYMPHOMA
     Dosage: 2 MG, QD
     Route: 041
     Dates: start: 20160923, end: 20160923
  38. ONCOVIN [Concomitant]
     Active Substance: VINCRISTINE SULFATE
     Dosage: 2 MG, QD
     Route: 041
     Dates: start: 20161201, end: 20161201
  39. ENDOXAN [Concomitant]
     Active Substance: CYCLOPHOSPHAMIDE
     Indication: ANGIOIMMUNOBLASTIC T-CELL LYMPHOMA
     Dosage: 1278 MG, QD
     Route: 041
     Dates: start: 20160923, end: 20160923
  40. LOXOPROFEN SODIUM HYDRATE [Concomitant]
     Active Substance: LOXOPROFEN SODIUM DIHYDRATE
     Indication: LYMPHADENITIS
     Dosage: 60 MG, BID
     Route: 048
     Dates: start: 20160716, end: 20160807
  41. BANAN [Concomitant]
     Active Substance: CEFPODOXIME PROXETIL
     Indication: LYMPHADENITIS
     Dosage: 100 MG, BID
     Route: 048
     Dates: start: 20160716, end: 20160720
  42. CLARITH [Concomitant]
     Active Substance: CLARITHROMYCIN
     Indication: LYMPHADENITIS
     Dosage: 200 MG, BID
     Route: 048
     Dates: start: 20160728, end: 20160801
  43. LOXOPROFEN NA [Concomitant]
     Active Substance: LOXOPROFEN SODIUM
     Indication: POSTOPERATIVE CARE
     Dosage: 60 MG, PRN
     Route: 048
     Dates: start: 20160830, end: 20160901
  44. EMEND [Concomitant]
     Active Substance: APREPITANT
     Dosage: 80 MG, QD
     Route: 048
     Dates: start: 20161111, end: 20161112
  45. EMEND [Concomitant]
     Active Substance: APREPITANT
     Dosage: 125 MG, QD
     Route: 048
     Dates: start: 20161222, end: 20161222
  46. MAGNESIUM OXIDE. [Concomitant]
     Active Substance: MAGNESIUM OXIDE
     Indication: CONSTIPATION
     Dosage: 500 MG, TID
     Route: 048
     Dates: start: 20160928
  47. G-LASTA [Suspect]
     Active Substance: PEGFILGRASTIM
     Indication: COLONY STIMULATING FACTOR PROPHYLAXIS
     Dosage: 3.6 MG, QD
     Route: 058
     Dates: start: 20161022, end: 20161022
  48. FEXOFENADINE HYDROCHLORIDE. [Concomitant]
     Active Substance: FEXOFENADINE HYDROCHLORIDE
     Dosage: 60 MG, BID
     Route: 048
     Dates: start: 20161224, end: 20161231
  49. ONCOVIN [Concomitant]
     Active Substance: VINCRISTINE SULFATE
     Dosage: 2 MG, QD
     Route: 041
     Dates: start: 20161110, end: 20161110
  50. CEFDITOREN PIVOXIL. [Concomitant]
     Active Substance: CEFDITOREN PIVOXIL
     Indication: POSTOPERATIVE CARE
     Dosage: 100 MG, TID
     Route: 048
     Dates: start: 20160830, end: 20160901
  51. FEBURIC [Concomitant]
     Active Substance: FEBUXOSTAT
     Dosage: 20 MG, QD
     Route: 048
     Dates: start: 20160922
  52. EMEND [Concomitant]
     Active Substance: APREPITANT
     Dosage: 125 MG, QD
     Route: 048
     Dates: start: 20161110, end: 20161110
  53. LEVOFLOXACIN HEMIHYDRATE [Concomitant]
     Active Substance: LEVOFLOXACIN
     Indication: CELLULITIS
     Dosage: 500 MG, QD
     Route: 048
     Dates: start: 20161012, end: 20161022
  54. ALOXI [Concomitant]
     Active Substance: PALONOSETRON HYDROCHLORIDE
     Dosage: 0.75 MG, QD
     Route: 042
     Dates: start: 20161020, end: 20161020
  55. G-LASTA [Suspect]
     Active Substance: PEGFILGRASTIM
     Indication: NEUTROPHIL COUNT DECREASED
     Dosage: 3.6 MG, QD
     Route: 058
     Dates: start: 20160925, end: 20160925
  56. G-LASTA [Suspect]
     Active Substance: PEGFILGRASTIM
     Dosage: 3.6 MG, QD
     Route: 058
     Dates: start: 20161224, end: 20161224
  57. DOXORUBICIN HYDROCHLORIDE. [Concomitant]
     Active Substance: DOXORUBICIN HYDROCHLORIDE
     Dosage: 83 MG, QD
     Route: 041
     Dates: start: 20161201, end: 20161201
  58. DOXORUBICIN HYDROCHLORIDE. [Concomitant]
     Active Substance: DOXORUBICIN HYDROCHLORIDE
     Dosage: 83 MG, QD
     Route: 041
     Dates: start: 20161222, end: 20161222
  59. ENDOXAN [Concomitant]
     Active Substance: CYCLOPHOSPHAMIDE
     Dosage: 1254 MG, QD
     Route: 041
     Dates: start: 20161020, end: 20161020
  60. PREDONINE [Concomitant]
     Active Substance: PREDNISOLONE
     Dosage: 100 MG, QD
     Route: 048
     Dates: start: 20161201, end: 20161205
  61. ZESULAN [Concomitant]
     Active Substance: MEQUITAZINE
     Indication: LYMPHADENITIS
     Dosage: 3 MG, BID
     Route: 048
     Dates: start: 20160716, end: 20160720
  62. ENDOXAN [Concomitant]
     Active Substance: CYCLOPHOSPHAMIDE
     Dosage: 1254 MG, QD
     Route: 041
     Dates: start: 20161110, end: 20161110
  63. MUCODYNE [Concomitant]
     Active Substance: CARBOCYSTEINE
     Indication: LYMPHADENITIS
     Dosage: 500 MG, TID
     Route: 048
     Dates: start: 20160716, end: 20160726
  64. NEXIUM [Concomitant]
     Active Substance: ESOMEPRAZOLE MAGNESIUM
     Indication: GASTRIC ULCER
     Dosage: 20 MG, QD
     Route: 048
     Dates: start: 20160826
  65. EMEND [Concomitant]
     Active Substance: APREPITANT
     Dosage: 125 MG, QD
     Route: 048
     Dates: start: 20161201, end: 20161201
  66. EMEND [Concomitant]
     Active Substance: APREPITANT
     Dosage: 80 MG, QD
     Route: 048
     Dates: start: 20161223, end: 20161224

REACTIONS (5)
  - Urticaria [Recovered/Resolved]
  - Urticaria [Recovered/Resolved]
  - Urticaria [Recovered/Resolved]
  - Urticaria [Recovering/Resolving]
  - Dyspnoea [Recovering/Resolving]

NARRATIVE: CASE EVENT DATE: 20161022
